FAERS Safety Report 6677776-6 (Version None)
Quarter: 2010Q2

REPORT INFORMATION
  Report Type: 
  Country: None (occurrence: None)
  Receive Date: 20100412
  Receipt Date: 20100223
  Transmission Date: 20101027
  Serious: No
  Sender: FDA-Public Use
  Company Number: US-ALEXION-A200901131

PATIENT
  Sex: Female

DRUGS (19)
  1. SOLIRIS [Suspect]
     Indication: PAROXYSMAL NOCTURNAL HAEMOGLOBINURIA
     Dosage: 600 MG, UNK
     Route: 042
     Dates: start: 20090805
  2. SOLIRIS [Suspect]
     Dosage: 900 MG, Q2W
     Route: 042
     Dates: start: 20090910
  3. MOTRIN [Concomitant]
     Dosage: 800 MG, QD
     Route: 048
     Dates: end: 20091218
  4. ALEVE (CAPLET) [Concomitant]
     Dosage: UNK
     Route: 048
     Dates: start: 20091218
  5. OMEPRAZOLE [Concomitant]
     Dosage: 20 MG, BID
     Route: 048
  6. FOLIC ACID [Concomitant]
     Dosage: 1 MG, QD
     Route: 048
  7. AMITRIPTYLINE HCL [Concomitant]
     Dosage: 50 MG, QD
     Route: 048
     Dates: start: 20091101
  8. PERCOCET [Concomitant]
     Indication: PAIN
     Dosage: 5/325 MG
  9. COMPAZINE [Concomitant]
     Indication: NAUSEA
     Dosage: 10 MG, PRN
  10. ATARAX [Concomitant]
     Indication: PRURITUS
     Dosage: 25 MG, PRN
     Route: 048
  11. ATARAX [Concomitant]
     Indication: PREMEDICATION
  12. FERROUS SULFATE TAB [Concomitant]
     Dosage: UNK
  13. RESTORIL                           /00393701/ [Concomitant]
     Indication: SLEEP DISORDER
     Dosage: 30 MG, QD
  14. IMITREX                            /01044801/ [Concomitant]
     Indication: MIGRAINE
     Dosage: 50 MG, PRN
     Route: 048
  15. MULTIVITAMIN                       /00831701/ [Concomitant]
     Dosage: UNK
     Route: 048
  16. PEPCID [Concomitant]
     Dosage: 40 MG, UNK
     Route: 048
     Dates: end: 20091222
  17. ISOSORBIDE DINITRATE [Concomitant]
     Dosage: UNK
     Route: 048
  18. ZANTAC                             /00550802/ [Concomitant]
     Indication: PREMEDICATION
     Dosage: 50 MG, UNK
     Route: 042
  19. DECADRON [Concomitant]
     Indication: PREMEDICATION
     Dosage: 4 MG, UNK
     Route: 042

REACTIONS (2)
  - ANXIETY [None]
  - OXYGEN SATURATION DECREASED [None]
